FAERS Safety Report 9732749 (Version 2)
Quarter: 2013Q4

REPORT INFORMATION
  Report Type: Spontaneous
  Country: GB (occurrence: GB)
  Receive Date: 20131204
  Receipt Date: 20131220
  Transmission Date: 20140711
  Serious: Yes (Hospitalization)
  Sender: FDA-Public Use
  Company Number: GB-GLAXOSMITHKLINE-B0877844A

PATIENT
  Sex: Male

DRUGS (2)
  1. AVANDIA [Suspect]
     Indication: TYPE 2 DIABETES MELLITUS
     Dates: start: 2001, end: 201010
  2. GLIMEPIRIDE [Concomitant]

REACTIONS (12)
  - Angina unstable [Unknown]
  - Chest pain [Unknown]
  - Chest discomfort [Unknown]
  - Dyspnoea [Unknown]
  - Myocardial infarction [Unknown]
  - Heart rate increased [Unknown]
  - Heart rate increased [Unknown]
  - Cardiac flutter [Unknown]
  - Palpitations [Unknown]
  - Pain in extremity [Unknown]
  - Lethargy [Unknown]
  - Acute myocardial infarction [Unknown]
